FAERS Safety Report 7724128-3 (Version None)
Quarter: 2011Q3

REPORT INFORMATION
  Report Type: 
  Country: None (occurrence: None)
  Receive Date: 20110901
  Receipt Date: 20110823
  Transmission Date: 20111222
  Serious: Yes (Hospitalization)
  Sender: FDA-Public Use
  Company Number: GB-ASTRAZENECA-2011SE44118

PATIENT
  Age: 31953 Day
  Sex: Male
  Weight: 62 kg

DRUGS (9)
  1. ASPIRIN [Concomitant]
     Route: 048
  2. LISINOPRIL [Concomitant]
     Route: 048
  3. IRESSA [Suspect]
     Indication: NON-SMALL CELL LUNG CANCER
     Route: 048
     Dates: start: 20110510, end: 20110524
  4. ALLOPURINOL [Concomitant]
     Route: 048
  5. AMITRIPTYLINE HCL [Concomitant]
     Route: 048
  6. ALFUZOSIN XL [Concomitant]
     Route: 048
     Dates: start: 20110413, end: 20110417
  7. FUROSEMIDE [Concomitant]
     Route: 048
  8. LANSOPRAZOLE [Concomitant]
     Route: 048
  9. ROSUVASTATIN [Concomitant]
     Route: 048

REACTIONS (2)
  - RECTAL HAEMORRHAGE [None]
  - DIARRHOEA [None]
